FAERS Safety Report 13023091 (Version 1)
Quarter: 2016Q4

REPORT INFORMATION
  Report Type: Spontaneous
  Country: US (occurrence: US)
  Receive Date: 20161213
  Receipt Date: 20161213
  Transmission Date: 20170207
  Serious: No
  Sender: FDA-Public Use
  Company Number: US-TEVA-700083USA

PATIENT
  Sex: Female
  Weight: 77.18 kg

DRUGS (2)
  1. WARFARIN [Interacting]
     Active Substance: WARFARIN
     Route: 065
  2. AZITHROMYCIN ANHYDROUS. [Suspect]
     Active Substance: AZITHROMYCIN ANHYDROUS
     Indication: PULMONARY CONGESTION
     Route: 048
     Dates: start: 20160902

REACTIONS (1)
  - Drug interaction [Unknown]
